FAERS Safety Report 14800768 (Version 1)
Quarter: 2018Q2

REPORT INFORMATION
  Report Type: Spontaneous
  Country: ES (occurrence: ES)
  Receive Date: 20180424
  Receipt Date: 20180424
  Transmission Date: 20180711
  Serious: Yes (Hospitalization)
  Sender: FDA-Public Use
  Company Number: ES-TEVA-2018-ES-884004

PATIENT
  Age: 27 Year
  Sex: Male

DRUGS (2)
  1. LEFLUNOMIDA (7414A) [Suspect]
     Active Substance: LEFLUNOMIDE
     Route: 048
     Dates: start: 201703, end: 20180207
  2. COSENTYX [Suspect]
     Active Substance: SECUKINUMAB
     Indication: PSORIATIC ARTHROPATHY
     Dosage: TRES DOSIS, (19.01.18; 26.01.18 Y 02.02.18),
     Route: 058
     Dates: start: 20180119, end: 20180202

REACTIONS (3)
  - Rash erythematous [Recovering/Resolving]
  - Pruritus [Recovering/Resolving]
  - Exfoliative rash [Recovering/Resolving]

NARRATIVE: CASE EVENT DATE: 20180126
